FAERS Safety Report 16704639 (Version 3)
Quarter: 2019Q3

REPORT INFORMATION
  Report Type: Report from Study
  Country: US (occurrence: US)
  Receive Date: 20190814
  Receipt Date: 20190918
  Transmission Date: 20191004
  Serious: No
  Sender: FDA-Public Use
  Company Number: US-ALEXION PHARMACEUTICALS INC.-A201911986

PATIENT
  Sex: Female

DRUGS (1)
  1. SOLIRIS [Suspect]
     Active Substance: ECULIZUMAB
     Indication: PRODUCT USED FOR UNKNOWN INDICATION
     Route: 065

REACTIONS (10)
  - Night sweats [Unknown]
  - Hypoaesthesia [Unknown]
  - Dehydration [Unknown]
  - Peripheral swelling [Unknown]
  - Headache [Unknown]
  - Rhinorrhoea [Unknown]
  - Back pain [Unknown]
  - Paraesthesia [Unknown]
  - Abdominal pain [Unknown]
  - Muscular weakness [Unknown]

NARRATIVE: CASE EVENT DATE: 20190805
